FAERS Safety Report 17300936 (Version 1)
Quarter: 2020Q1

REPORT INFORMATION
  Report Type: Spontaneous
  Country: US (occurrence: US)
  Receive Date: 20200122
  Receipt Date: 20200122
  Transmission Date: 20200409
  Serious: No
  Sender: FDA-Public Use
  Company Number: US-PFIZER INC-2017007008

PATIENT
  Age: 63 Year
  Sex: Female
  Weight: 67 kg

DRUGS (1)
  1. PREMARIN [Suspect]
     Active Substance: ESTROGENS, CONJUGATED
     Indication: VULVOVAGINAL DRYNESS
     Dosage: 0.5 MG, THREE TIMES A WEEK
     Route: 067

REACTIONS (3)
  - Wrong technique in product usage process [Unknown]
  - Nasopharyngitis [Unknown]
  - Product complaint [Unknown]

NARRATIVE: CASE EVENT DATE: 201612
